FAERS Safety Report 4677909-7 (Version None)
Quarter: 2005Q2

REPORT INFORMATION
  Report Type: 
  Country: None (occurrence: None)
  Receive Date: 20050531
  Receipt Date: 20050222
  Transmission Date: 20051028
  Serious: Yes (Hospitalization)
  Sender: FDA-Public Use
  Company Number: 2005003330

PATIENT
  Age: 48 Year
  Sex: Female

DRUGS (3)
  1. QUILONUM RETARD [Suspect]
     Route: 048
  2. ROHYPNOL [Suspect]
     Route: 048
  3. TAXILAN [Suspect]
     Route: 048

REACTIONS (3)
  - DRUG ABUSER [None]
  - GAIT DISTURBANCE [None]
  - SOMNOLENCE [None]
